FAERS Safety Report 6675669-1 (Version None)
Quarter: 2010Q2

REPORT INFORMATION
  Report Type: 
  Country: None (occurrence: None)
  Receive Date: 20100409
  Receipt Date: 20100326
  Transmission Date: 20101027
  Serious: Yes (Hospitalization, Other)
  Sender: FDA-Public Use
  Company Number: CA-ELI_LILLY_AND_COMPANY-CA201003007812

PATIENT
  Sex: Female

DRUGS (6)
  1. FORTEO [Suspect]
     Indication: OSTEOPOROSIS
     Dosage: 20 UG, DAILY (1/D)
     Route: 058
     Dates: start: 20100129
  2. MICARDIS [Concomitant]
  3. CRESTOR /01588602/ [Concomitant]
  4. CALCIUM [Concomitant]
  5. VITAMIN D [Concomitant]
     Dosage: 1000 MG, DAILY (1/D)
  6. VITAMIN D [Concomitant]
     Dosage: 1000 MG, DAILY (1/D)

REACTIONS (3)
  - FALL [None]
  - HIP FRACTURE [None]
  - LABORATORY TEST ABNORMAL [None]
